FAERS Safety Report 12580953 (Version 1)
Quarter: 2016Q3

REPORT INFORMATION
  Report Type: Spontaneous
  Country: DE (occurrence: DE)
  Receive Date: 20160721
  Receipt Date: 20160721
  Transmission Date: 20161109
  Serious: Yes (Hospitalization)
  Sender: FDA-Public Use
  Company Number: GXKR2016DE003481

PATIENT
  Age: 49 Year
  Sex: Male

DRUGS (2)
  1. RAMIPRIL HEXAL [Suspect]
     Active Substance: RAMIPRIL
     Indication: HYPERTENSION
     Dosage: 2.5 MG/DAY (0.5-0-0)
  2. AMLODIPINE [Concomitant]
     Active Substance: AMLODIPINE BESYLATE
     Indication: PRODUCT USED FOR UNKNOWN INDICATION
     Dosage: 2.5 MG, QD

REACTIONS (5)
  - Staring [Unknown]
  - Dyspnoea [Unknown]
  - Panic attack [Unknown]
  - Abdominal discomfort [Unknown]
  - Tachycardia [Unknown]
